FAERS Safety Report 5535552-1 (Version None)
Quarter: 2007Q4

REPORT INFORMATION
  Report Type: 
  Country: None (occurrence: None)
  Receive Date: 20071120
  Receipt Date: 20070809
  Transmission Date: 20080405
  Serious: No
  Sender: FDA-Public Use
  Company Number: WAES 0708USA01858

PATIENT
  Age: 59 Year
  Sex: Female

DRUGS (5)
  1. JANUVIA [Suspect]
     Indication: TYPE 2 DIABETES MELLITUS
     Dosage: 100 MG/DAILY/PO
     Route: 048
     Dates: start: 20070609
  2. VYTORIN [Concomitant]
  3. GLYBURIDE [Concomitant]
  4. LECITHIN [Concomitant]
  5. OMEGA-3 MARINE TRIGLYCERIDES [Concomitant]

REACTIONS (2)
  - ABDOMINAL DISCOMFORT [None]
  - BLOOD GLUCOSE ABNORMAL [None]
